FAERS Safety Report 10089790 (Version 1)
Quarter: 2014Q2

REPORT INFORMATION
  Report Type: Spontaneous
  Country: US (occurrence: US)
  Receive Date: 20140421
  Receipt Date: 20140421
  Transmission Date: 20141212
  Serious: No
  Sender: FDA-Public Use
  Company Number: US-B.I. PHARMACEUTICALS,INC./RIDGEFIELD-2014-BI-16152BP

PATIENT
  Age: 77 Year
  Sex: Female
  Weight: 64 kg

DRUGS (7)
  1. AGGRENOX [Suspect]
     Indication: CEREBROVASCULAR ACCIDENT PROPHYLAXIS
     Dosage: DOSE PER APPLICATION: 25 MG / 200 MG; DAILY DOSE: 50 MG/ 400 MG
     Route: 048
     Dates: start: 20140321
  2. AGGRENOX [Suspect]
     Route: 048
     Dates: start: 20140328
  3. AGGRENOX [Suspect]
     Dosage: DOSE PER APPLICATION: 25 MG / 200 MG; DAILY DOSE: 50 MG/ 400 MG
     Route: 048
     Dates: start: 20140407
  4. PRAVASTATIN [Concomitant]
     Indication: BLOOD CHOLESTEROL INCREASED
     Dosage: 20 MG
     Route: 048
  5. ASPIRIN [Concomitant]
     Dosage: 81 MG
     Route: 048
  6. COQ10 [Concomitant]
     Dosage: 1 ANZ
     Route: 048
  7. CALCIUM [Concomitant]
     Indication: OSTEOPOROSIS
     Dosage: 500 MG
     Route: 048

REACTIONS (3)
  - Headache [Recovered/Resolved]
  - Headache [Not Recovered/Not Resolved]
  - Wound [Recovered/Resolved]
